FAERS Safety Report 11151072 (Version 1)
Quarter: 2015Q2

REPORT INFORMATION
  Report Type: Spontaneous
  Country: CA (occurrence: CA)
  Receive Date: 20150601
  Receipt Date: 20150601
  Transmission Date: 20150821
  Serious: Yes (Other)
  Sender: FDA-Public Use
  Company Number: CA-TEVA-565929ACC

PATIENT
  Sex: Female

DRUGS (5)
  1. PREDNISOLONE OPHTHALMIC SOLUTION [Suspect]
     Active Substance: PREDNISOLONE
     Indication: MACULAR DEGENERATION
  2. LUMIGAN [Suspect]
     Active Substance: BIMATOPROST
     Indication: MACULAR DEGENERATION
  3. PREDNISOLONE OPHTHALMIC SOLUTION [Suspect]
     Active Substance: PREDNISOLONE
     Indication: PROPHYLAXIS
     Dosage: UNKNOWN FORM STRENGTH
     Route: 047
  4. LUMIGAN [Suspect]
     Active Substance: BIMATOPROST
     Indication: PROPHYLAXIS
     Dosage: UNKNOWN FORM STRENGTH
     Route: 047
  5. AZOPT [Suspect]
     Active Substance: BRINZOLAMIDE
     Indication: GLAUCOMA
     Dosage: UNKNOWN FORM STRENGTH
     Route: 047

REACTIONS (1)
  - Dementia Alzheimer^s type [Unknown]
